FAERS Safety Report 6463470-3 (Version None)
Quarter: 2009Q4

REPORT INFORMATION
  Report Type: 
  Country: None (occurrence: None)
  Receive Date: 20091201
  Receipt Date: 20091013
  Transmission Date: 20100525
  Serious: Yes (Hospitalization)
  Sender: FDA-Public Use
  Company Number: US-AMGEN-QUU361803

PATIENT
  Sex: Female
  Weight: 64.6 kg

DRUGS (4)
  1. ENBREL [Suspect]
     Indication: PSORIASIS
     Route: 058
     Dates: start: 20080513, end: 20090822
  2. ESTRATEST [Concomitant]
  3. PEPCID [Concomitant]
     Route: 048
  4. NORCO [Concomitant]

REACTIONS (3)
  - DEMYELINATION [None]
  - INTERVERTEBRAL DISC PROTRUSION [None]
  - MULTIPLE SCLEROSIS [None]
